FAERS Safety Report 7926007-5 (Version None)
Quarter: 2011Q4

REPORT INFORMATION
  Report Type: 
  Country: None (occurrence: None)
  Receive Date: 20111118
  Receipt Date: 20110415
  Transmission Date: 20120403
  Serious: No
  Sender: FDA-Public Use
  Company Number: US-AMGEN-USASP2011020127

PATIENT
  Age: 32 Year
  Sex: Female

DRUGS (1)
  1. ENBREL [Suspect]
     Indication: ANKYLOSING SPONDYLITIS
     Dosage: 50 MG, QWK
     Dates: start: 20110328

REACTIONS (13)
  - INJECTION SITE SWELLING [None]
  - ORAL PAIN [None]
  - INJECTION SITE PRURITUS [None]
  - INJECTION SITE ERYTHEMA [None]
  - CYANOSIS [None]
  - LOCAL SWELLING [None]
  - TENSION HEADACHE [None]
  - FATIGUE [None]
  - INJECTION SITE WARMTH [None]
  - POOR PERIPHERAL CIRCULATION [None]
  - NAUSEA [None]
  - MUSCLE TIGHTNESS [None]
  - RASH MACULAR [None]
